FAERS Safety Report 24016193 (Version 2)
Quarter: 2024Q4

REPORT INFORMATION
  Report Type: Spontaneous
  Country: US (occurrence: US)
  Receive Date: 20240626
  Receipt Date: 20241018
  Transmission Date: 20250115
  Serious: No
  Sender: SANOFI AVENTIS
  Company Number: US-SA-SAC20240619000867

PATIENT
  Age: 50 Year
  Sex: Male

DRUGS (1)
  1. DUPIXENT [Suspect]
     Active Substance: DUPILUMAB
     Indication: Dermatitis atopic
     Dosage: 300 MG, QOW
     Route: 058

REACTIONS (10)
  - Dry skin [Unknown]
  - Skin fissures [Unknown]
  - Eczema [Unknown]
  - Pruritus [Unknown]
  - Skin haemorrhage [Unknown]
  - Scratch [Unknown]
  - Conjunctivitis [Unknown]
  - Arthralgia [Unknown]
  - Dry eye [Unknown]
  - Eye pruritus [Unknown]
